FAERS Safety Report 5064269-5 (Version None)
Quarter: 2006Q3

REPORT INFORMATION
  Report Type: 
  Country: None (occurrence: None)
  Receive Date: 20060728
  Receipt Date: 20060510
  Transmission Date: 20061208
  Serious: Yes (Hospitalization)
  Sender: FDA-Public Use
  Company Number: SK-SOLVAY-00206001674

PATIENT
  Age: 25574 Day
  Sex: Male
  Weight: 90 kg

DRUGS (13)
  1. PRESTARIUM [Concomitant]
     Indication: ILL-DEFINED DISORDER
     Dosage: DAILY DOSE: 4 MILLIGRAM(S)
     Route: 048
     Dates: start: 20020315, end: 20060314
  2. PRESTARIUM [Concomitant]
     Dosage: DAILY DOSE: 4 MILLIGRAM(S)
     Route: 048
     Dates: start: 20060501
  3. PERINORPIL/INDAPAMIDE VS. PLACEBO [Suspect]
     Indication: PROPHYLAXIS
     Dosage: DAILY DOSE: 1 DOSAGE FORM
     Route: 048
     Dates: start: 20020430, end: 20020904
  4. PERINORPIL/INDAPAMIDE VS. PLACEBO [Suspect]
     Dosage: DAILY DOSE: 2 DOSAGE FORM
     Route: 048
     Dates: start: 20020905, end: 20060314
  5. PERINORPIL/INDAPAMIDE VS. PLACEBO [Suspect]
     Dosage: DAILY DOSE:  UNKNOWN
     Route: 048
  6. AMARYL [Concomitant]
     Indication: ILL-DEFINED DISORDER
     Dosage: DAILY DOSE:  UNKNOWN
     Route: 065
     Dates: start: 20020301
  7. BETALOC [Concomitant]
     Indication: ILL-DEFINED DISORDER
     Dosage: DAILY DOSE:  UNKNOWN
     Route: 065
     Dates: start: 20020301
  8. NITRENDIPINE [Concomitant]
     Indication: ILL-DEFINED DISORDER
     Dosage: DAILY DOSE:  UNKNOWN
     Route: 065
     Dates: start: 20020301
  9. EBRANTIL [Concomitant]
     Indication: ILL-DEFINED DISORDER
     Dosage: DAILY DOSE:  UNKNOWN
     Route: 065
     Dates: start: 20020301
  10. SIMVASTATIN [Concomitant]
     Indication: ILL-DEFINED DISORDER
     Dosage: DAILY DOSE:  UNKNOWN
     Route: 065
     Dates: start: 20020301
  11. ASPIRIN [Concomitant]
     Indication: ILL-DEFINED DISORDER
     Dosage: DAILY DOSE:  UNKNOWN
     Route: 065
     Dates: start: 20020301
  12. DIPYRIDAMOLE [Concomitant]
     Indication: ILL-DEFINED DISORDER
     Dosage: DAILY DOSE:  UNKNOWN
     Route: 065
  13. GLUCOPHAGE [Concomitant]
     Indication: ILL-DEFINED DISORDER
     Dosage: DAILY DOSE:  UNKNOWN
     Route: 048
     Dates: start: 20020301

REACTIONS (5)
  - BLOOD POTASSIUM DECREASED [None]
  - ENDOCRINE TEST [None]
  - ESSENTIAL HYPERTENSION [None]
  - HYPERTENSION [None]
  - METABOLIC DISORDER [None]
